FAERS Safety Report 7022652-2 (Version None)
Quarter: 2010Q3

REPORT INFORMATION
  Report Type: 
  Country: None (occurrence: None)
  Receive Date: 20100930
  Receipt Date: 20100923
  Transmission Date: 20110219
  Serious: Yes (Other)
  Sender: FDA-Public Use
  Company Number: BR-PFIZER INC-2010100480

PATIENT
  Age: 41 Year
  Sex: Female
  Weight: 79 kg

DRUGS (3)
  1. CHAMPIX [Suspect]
     Indication: NICOTINE DEPENDENCE
     Dosage: 1 TABLET, ONCE DAILY
     Route: 048
     Dates: start: 20100804
  2. CHAMPIX [Suspect]
     Indication: TOBACCO USER
  3. NEOZINE [Concomitant]
     Indication: SLEEP DISORDER
     Dosage: 50 MG, 1X/DAY
     Route: 048

REACTIONS (3)
  - AGGRESSION [None]
  - AGITATION [None]
  - NERVOUSNESS [None]
